FAERS Safety Report 5562940-X (Version None)
Quarter: 2007Q4

REPORT INFORMATION
  Report Type: 
  Country: None (occurrence: None)
  Receive Date: 20071217
  Receipt Date: 20071206
  Transmission Date: 20080405
  Serious: Yes (Other)
  Sender: FDA-Public Use
  Company Number: US-ROCHE-535902

PATIENT

DRUGS (1)
  1. ACCUTANE [Suspect]
     Dates: start: 19840101

REACTIONS (1)
  - DELIVERY [None]
